FAERS Safety Report 4353058-2 (Version None)
Quarter: 2004Q2

REPORT INFORMATION
  Report Type: 
  Country: None (occurrence: None)
  Receive Date: 20040430
  Receipt Date: 20040311
  Transmission Date: 20050107
  Serious: No
  Sender: FDA-Public Use
  Company Number: 205245

PATIENT
  Age: 58 Year
  Sex: Male
  Weight: 86.6 kg

DRUGS (13)
  1. XOLAIR [Suspect]
     Indication: ASTHMA
     Dosage: 300 MG, Q2W, SUBCUTANEOUS
     Route: 058
     Dates: start: 20031230
  2. XOLAIR [Suspect]
     Dates: start: 20040121
  3. XOLAIR [Suspect]
     Dates: start: 20040202
  4. XOLAIR [Suspect]
     Dates: start: 20040226
  5. XOLAIR [Suspect]
     Dates: start: 20040312
  6. XOPENEX [Concomitant]
  7. PROTONIX [Concomitant]
  8. ADVAIR (FLUTICASONE PROPIONATE) [Concomitant]
  9. MAXAIR [Concomitant]
  10. SINGULAIR [Concomitant]
  11. ZYRTEC [Concomitant]
  12. VIOXX [Concomitant]
  13. NASONEX [Concomitant]

REACTIONS (1)
  - ECZEMA [None]
